FAERS Safety Report 14554042 (Version 1)
Quarter: 2018Q1

REPORT INFORMATION
  Report Type: Spontaneous
  Country: US (occurrence: US)
  Receive Date: 20180220
  Receipt Date: 20180220
  Transmission Date: 20180509
  Serious: Yes (Death, Life-Threatening, Hospitalization, Disabling)
  Sender: FDA-Public Use
  Company Number: None

PATIENT
  Age: 64 Year
  Sex: Male
  Weight: 121.11 kg

DRUGS (2)
  1. OXYGEN. [Concomitant]
     Active Substance: OXYGEN
  2. HUMIRA [Suspect]
     Active Substance: ADALIMUMAB
     Indication: PSORIASIS
     Route: 058
     Dates: start: 20110101, end: 201506

REACTIONS (8)
  - Anal cancer [None]
  - Alopecia [None]
  - Hair colour changes [None]
  - Metastases to lung [None]
  - Premature ageing [None]
  - Amnesia [None]
  - Metastases to central nervous system [None]
  - Bradyphrenia [None]

NARRATIVE: CASE EVENT DATE: 20160206
